FAERS Safety Report 26058115 (Version 1)
Quarter: 2025Q4

REPORT INFORMATION
  Report Type: Spontaneous
  Country: US (occurrence: US)
  Receive Date: 20251118
  Receipt Date: 20251118
  Transmission Date: 20260118
  Serious: No
  Sender: AUROBINDO
  Company Number: US-AUROBINDO-AUR-APL-2025-022089

PATIENT
  Age: 82 Year
  Sex: Female
  Weight: 68.4 kg

DRUGS (7)
  1. CLONAZEPAM [Suspect]
     Active Substance: CLONAZEPAM
     Indication: Anxiety
     Dosage: 3 DOSAGE FORM, DAILY (3 TABLETS DAILY AT BEDTIME)
     Route: 048
     Dates: start: 202504
  2. DESVENLAFAXINE [Concomitant]
     Active Substance: DESVENLAFAXINE
     Indication: Depression
     Dosage: 100 MILLIGRAM, ONCE A DAY
     Route: 065
  3. METOPROLOL [Concomitant]
     Active Substance: METOPROLOL
     Indication: Tachycardia
     Dosage: UNK, TWO TIMES A DAY
     Route: 065
  4. LOSARTAN POTASSIUM [Concomitant]
     Active Substance: LOSARTAN POTASSIUM
     Indication: Hypertension
     Dosage: UNK, TWO TIMES A DAY
     Route: 065
  5. OMEPRAZOLE [Concomitant]
     Active Substance: OMEPRAZOLE
     Indication: Gastrooesophageal reflux disease
     Dosage: UNK , TWO TIMES A DAY
     Route: 065
  6. SUCRALFATE [Concomitant]
     Active Substance: SUCRALFATE
     Indication: Gastritis erosive
     Dosage: UNK, TWO TIMES A DAY
     Route: 065
  7. SOTALOL [Concomitant]
     Active Substance: SOTALOL
     Indication: Atrial fibrillation
     Dosage: UNK UNK, TWO TIMES A DAY
     Route: 065

REACTIONS (8)
  - Nervousness [Recovering/Resolving]
  - Withdrawal syndrome [Recovering/Resolving]
  - Hyperhidrosis [Recovering/Resolving]
  - Chills [Unknown]
  - Malaise [Unknown]
  - Myalgia [Unknown]
  - Drug ineffective [Unknown]
  - Product substitution issue [Unknown]

NARRATIVE: CASE EVENT DATE: 20250402
